FAERS Safety Report 24255118 (Version 4)
Quarter: 2024Q3

REPORT INFORMATION
  Report Type: Spontaneous
  Country: US (occurrence: US)
  Receive Date: 20240827
  Receipt Date: 20240917
  Transmission Date: 20241017
  Serious: No
  Sender: Haleon PLC
  Company Number: US-HALEON-2193502

PATIENT
  Sex: Female
  Weight: 104.33 kg

DRUGS (1)
  1. ALLI [Suspect]
     Active Substance: ORLISTAT
     Indication: Product used for unknown indication
     Dosage: 2 TABLETS 3 TIMES
     Route: 048

REACTIONS (6)
  - Abdominal pain upper [Recovered/Resolved]
  - Drug effect less than expected [Unknown]
  - Constipation [Recovered/Resolved]
  - Suspected counterfeit product [Unknown]
  - Product complaint [Unknown]
  - Faeces hard [Unknown]
